FAERS Safety Report 18607407 (Version 2)
Quarter: 2020Q4

REPORT INFORMATION
  Report Type: Spontaneous
  Country: US (occurrence: US)
  Receive Date: 20201211
  Receipt Date: 20201215
  Transmission Date: 20210114
  Serious: No
  Sender: FDA-Public Use
  Company Number: US-PFIZER INC-2020488804

PATIENT
  Age: 76 Year
  Sex: Male
  Weight: 108.86 kg

DRUGS (1)
  1. METOPROLOL TARTRATE. [Suspect]
     Active Substance: METOPROLOL TARTRATE
     Dosage: 90 MG, 3X/DAY

REACTIONS (2)
  - Drug tolerance [Unknown]
  - Limb discomfort [Unknown]
